FAERS Safety Report 13109980 (Version 1)
Quarter: 2017Q1

REPORT INFORMATION
  Report Type: Spontaneous
  Country: US (occurrence: US)
  Receive Date: 20170112
  Receipt Date: 20170112
  Transmission Date: 20170428
  Serious: Yes (Other)
  Sender: FDA-Public Use
  Company Number: US-ROCHE-1101434

PATIENT
  Age: 75 Year
  Sex: Male

DRUGS (4)
  1. ACTIVASE [Suspect]
     Active Substance: ALTEPLASE
     Indication: ACUTE MYOCARDIAL INFARCTION
     Route: 065
     Dates: start: 19960216
  2. HEPARIN [Concomitant]
     Active Substance: HEPARIN SODIUM
  3. NITRO [Concomitant]
     Active Substance: NITROGLYCERIN
  4. LIDOCAINE. [Concomitant]
     Active Substance: LIDOCAINE

REACTIONS (3)
  - Bradycardia [Unknown]
  - Haematoma [Unknown]
  - Hypotension [Unknown]
